FAERS Safety Report 7348036-5 (Version None)
Quarter: 2011Q1

REPORT INFORMATION
  Report Type: 
  Country: None (occurrence: None)
  Receive Date: 20110302
  Receipt Date: 20110218
  Transmission Date: 20110831
  Serious: Yes (Death, Hospitalization, Other)
  Sender: FDA-Public Use
  Company Number: 2011000292

PATIENT
  Sex: Female

DRUGS (1)
  1. TARCEVA [Suspect]
     Indication: LUNG NEOPLASM MALIGNANT
     Dosage: MG, ORAL
     Route: 048
     Dates: start: 20101201

REACTIONS (3)
  - PULMONARY EMBOLISM [None]
  - ISCHAEMIC STROKE [None]
  - APHASIA [None]
